FAERS Safety Report 8281093-0 (Version None)
Quarter: 2012Q2

REPORT INFORMATION
  Report Type: 
  Country: None (occurrence: None)
  Receive Date: 20120413
  Receipt Date: 20120410
  Transmission Date: 20120825
  Serious: Yes (Hospitalization)
  Sender: FDA-Public Use
  Company Number: DE-AMGEN-DEUSP2012022390

PATIENT
  Sex: Male

DRUGS (6)
  1. RITUXIMAB [Concomitant]
     Indication: LYMPHOMA
  2. VINCRISTINE [Concomitant]
     Indication: LYMPHOMA
  3. DOXORUBICIN HCL [Concomitant]
     Indication: LYMPHOMA
  4. PREDNISONE TAB [Concomitant]
     Indication: LYMPHOMA
  5. CYCLOPHOSPHAMIDE [Concomitant]
     Indication: LYMPHOMA
  6. NEULASTA [Suspect]
     Indication: CHEMOTHERAPY
     Dosage: UNK, ONE TIME DOSE
     Dates: start: 20120202

REACTIONS (2)
  - DRUG INEFFECTIVE [None]
  - BONE MARROW FAILURE [None]
